FAERS Safety Report 5011764-0 (Version None)
Quarter: 2006Q2

REPORT INFORMATION
  Report Type: 
  Country: None (occurrence: None)
  Receive Date: 20060526
  Receipt Date: 20060517
  Transmission Date: 20061013
  Serious: Yes (Hospitalization)
  Sender: FDA-Public Use
  Company Number: IE-AVENTIS-200615475GDDC

PATIENT
  Sex: Female

DRUGS (2)
  1. DOCETAXEL [Suspect]
     Route: 042
  2. HERCEPTIN [Concomitant]

REACTIONS (2)
  - COELIAC DISEASE [None]
  - DIARRHOEA [None]
